FAERS Safety Report 16544829 (Version 1)
Quarter: 2019Q3

REPORT INFORMATION
  Report Type: Spontaneous
  Country: FR (occurrence: FR)
  Receive Date: 20190709
  Receipt Date: 20190709
  Transmission Date: 20191004
  Serious: Yes (Other)
  Sender: FDA-Public Use
  Company Number: PHHY2019FR157982

PATIENT
  Sex: Female

DRUGS (2)
  1. ZARZIO [Suspect]
     Active Substance: FILGRASTIM
     Dosage: UNK (48 OT)
     Route: 065
  2. ZARZIO [Suspect]
     Active Substance: FILGRASTIM
     Indication: BONE MARROW DONATION
     Dosage: UNK (30 OT)
     Route: 065

REACTIONS (5)
  - Myalgia [Recovering/Resolving]
  - Arthralgia [Recovering/Resolving]
  - Anxiety [Recovering/Resolving]
  - Fatigue [Recovering/Resolving]
  - Pain [Recovering/Resolving]
